FAERS Safety Report 5413908-5 (Version None)
Quarter: 2007Q3

REPORT INFORMATION
  Report Type: 
  Country: None (occurrence: None)
  Receive Date: 20070814
  Receipt Date: 20070801
  Transmission Date: 20080115
  Serious: Yes (Hospitalization)
  Sender: FDA-Public Use
  Company Number: US-ELI_LILLY_AND_COMPANY-US200708000159

PATIENT
  Age: 61 Year
  Sex: Female

DRUGS (2)
  1. FORTEO [Suspect]
     Indication: OSTEOPOROSIS
     Dosage: UNK, UNK
     Dates: start: 20061101, end: 20070728
  2. FORTEO [Suspect]
     Dosage: UNK, UNK
     Dates: start: 20070801

REACTIONS (6)
  - ASTHENIA [None]
  - BODY TEMPERATURE INCREASED [None]
  - ESCHERICHIA INFECTION [None]
  - LABORATORY TEST ABNORMAL [None]
  - RENAL CYST [None]
  - SPINAL COMPRESSION FRACTURE [None]
